FAERS Safety Report 5937642-8 (Version None)
Quarter: 2008Q4

REPORT INFORMATION
  Report Type: 
  Country: None (occurrence: None)
  Receive Date: 20081031
  Receipt Date: 20081027
  Transmission Date: 20090506
  Serious: Yes (Life-Threatening, Hospitalization)
  Sender: FDA-Public Use
  Company Number: FR-BRISTOL-MYERS SQUIBB COMPANY-14386643

PATIENT
  Age: 64 Year
  Sex: Female

DRUGS (5)
  1. GLUCOPHAGE [Suspect]
     Indication: TYPE 2 DIABETES MELLITUS
     Route: 048
     Dates: end: 20070303
  2. ALDALIX [Suspect]
     Route: 048
     Dates: end: 20070301
  3. PRITOR [Suspect]
     Route: 048
     Dates: end: 20070301
  4. ACTOS [Concomitant]
     Route: 048
  5. TAHOR [Concomitant]
     Dosage: FILM-COATED TABS
     Route: 048

REACTIONS (5)
  - BLOOD LACTIC ACID INCREASED [None]
  - CARDIAC ARREST [None]
  - COMA [None]
  - LACTIC ACIDOSIS [None]
  - RENAL FAILURE ACUTE [None]
